FAERS Safety Report 6624589-7 (Version None)
Quarter: 2010Q1

REPORT INFORMATION
  Report Type: 
  Country: None (occurrence: None)
  Receive Date: 20100310
  Receipt Date: 20090928
  Transmission Date: 20100710
  Serious: No
  Sender: FDA-Public Use
  Company Number: US-BIOGENIDEC-2009BI031739

PATIENT
  Sex: Female

DRUGS (3)
  1. AVONEX [Suspect]
     Indication: MULTIPLE SCLEROSIS
     Route: 030
     Dates: start: 20010514
  2. MEDICATION (NOS) [Concomitant]
     Indication: OSTEOPOROSIS PROPHYLAXIS
  3. MEDICATION (NOS) [Concomitant]
     Indication: PROPHYLAXIS

REACTIONS (8)
  - BRONCHITIS [None]
  - DYSARTHRIA [None]
  - HYPERTENSION [None]
  - INFLUENZA LIKE ILLNESS [None]
  - MOBILITY DECREASED [None]
  - PNEUMONIA [None]
  - VITAMIN B12 DEFICIENCY [None]
  - VITAMIN D DEFICIENCY [None]
